FAERS Safety Report 9996024 (Version 1)
Quarter: 2014Q1

REPORT INFORMATION
  Report Type: Spontaneous
  Country: US (occurrence: None)
  Receive Date: 20140310
  Receipt Date: 20140310
  Transmission Date: 20141002
  Serious: No
  Sender: FDA-Public Use
  Company Number: None

PATIENT
  Age: 67 Year
  Sex: Female
  Weight: 70.31 kg

DRUGS (8)
  1. DULOXETINE [Suspect]
     Indication: PAIN
     Dosage: BY MOUTH
     Dates: start: 20140213, end: 20140219
  2. FEMARA [Concomitant]
  3. MONTELUKAST [Concomitant]
  4. CLARINEX [Concomitant]
  5. PATANASE NASAL SPRAY [Concomitant]
  6. ADVAIR [Concomitant]
  7. ALBUTEROL [Concomitant]
  8. VITAMIN E [Concomitant]

REACTIONS (2)
  - Diarrhoea [None]
  - Product substitution issue [None]
